FAERS Safety Report 5893921-4 (Version None)
Quarter: 2008Q3

REPORT INFORMATION
  Report Type: 
  Country: None (occurrence: None)
  Receive Date: 20080923
  Receipt Date: 20080912
  Transmission Date: 20090109
  Serious: Yes (Hospitalization, Other)
  Sender: FDA-Public Use
  Company Number: CA-ELI_LILLY_AND_COMPANY-CA200807003982

PATIENT
  Age: 45 Year
  Sex: Male

DRUGS (1)
  1. HUMALOG [Suspect]
     Indication: DIABETES MELLITUS

REACTIONS (22)
  - ANGER [None]
  - ANXIETY [None]
  - APALLIC SYNDROME [None]
  - ASTHENIA [None]
  - CONFUSIONAL STATE [None]
  - DECREASED INTEREST [None]
  - DEPRESSED MOOD [None]
  - ELECTROCARDIOGRAM T WAVE AMPLITUDE DECREASED [None]
  - EMOTIONAL DISTRESS [None]
  - FEAR [None]
  - HEADACHE [None]
  - HYPERGLYCAEMIA [None]
  - HYPOGLYCAEMIA [None]
  - HYPOGLYCAEMIC COMA [None]
  - INCORRECT DOSE ADMINISTERED [None]
  - INSOMNIA [None]
  - LIMB INJURY [None]
  - LOSS OF CONSCIOUSNESS [None]
  - MALAISE [None]
  - ORAL DISORDER [None]
  - SWELLING FACE [None]
  - VISION BLURRED [None]
